FAERS Safety Report 25868730 (Version 1)
Quarter: 2025Q4

REPORT INFORMATION
  Report Type: Report from Study
  Country: US (occurrence: US)
  Receive Date: 20251001
  Receipt Date: 20251001
  Transmission Date: 20260118
  Serious: Yes (Hospitalization)
  Sender: EISAI
  Company Number: US-Eisai-EC-2025-187857

PATIENT
  Age: 73 Year
  Sex: Female

DRUGS (1)
  1. LENVIMA [Suspect]
     Active Substance: LENVATINIB
     Indication: Thyroid cancer
     Route: 048
     Dates: start: 202410, end: 2025

REACTIONS (2)
  - Cerebrovascular accident [Unknown]
  - Dysphagia [Unknown]

NARRATIVE: CASE EVENT DATE: 20250101
